FAERS Safety Report 8398663-1 (Version None)
Quarter: 2012Q2

REPORT INFORMATION
  Report Type: 
  Country: None (occurrence: None)
  Receive Date: 20120524
  Receipt Date: 20120514
  Transmission Date: 20120825
  Serious: Yes (Other)
  Sender: FDA-Public Use
  Company Number: 2012-001837

PATIENT
  Age: 74 Year
  Sex: Female

DRUGS (1)
  1. RISEDRONATE SODIUM [Suspect]
     Dosage: 17.5 MG WEEKLY

REACTIONS (3)
  - BONE CALLUS EXCESSIVE [None]
  - INJURY [None]
  - ATYPICAL FEMUR FRACTURE [None]
